FAERS Safety Report 7032804-3 (Version None)
Quarter: 2010Q4

REPORT INFORMATION
  Report Type: 
  Country: None (occurrence: None)
  Receive Date: 20101007
  Receipt Date: 20101004
  Transmission Date: 20110411
  Serious: Yes (Other)
  Sender: FDA-Public Use
  Company Number: GXKR2010DE11136

PATIENT
  Sex: Male

DRUGS (3)
  1. LAMOTRIGIN HEXAL (NGX) [Suspect]
     Dosage: 25 MG, UNK
     Route: 048
  2. ENALAPRIL MALEATE [Suspect]
     Dosage: 10 MG, UNK
     Route: 048
  3. SEROQUEL [Suspect]
     Route: 048

REACTIONS (1)
  - CIRCULATORY COLLAPSE [None]
